FAERS Safety Report 7584879-0 (Version None)
Quarter: 2011Q2

REPORT INFORMATION
  Report Type: 
  Country: None (occurrence: None)
  Receive Date: 20110630
  Receipt Date: 20110621
  Transmission Date: 20111010
  Serious: Yes (Life-Threatening, Other)
  Sender: FDA-Public Use
  Company Number: JP-AMGEN-JPNCT2011028044

PATIENT
  Age: 59 Year
  Sex: Male
  Weight: 82 kg

DRUGS (15)
  1. MYSER [Concomitant]
     Dosage: UNK
     Route: 062
  2. MINOCYCLINE HCL [Concomitant]
     Dosage: UNK
     Route: 048
  3. FLUOROURACIL [Concomitant]
     Route: 041
     Dates: start: 20100629, end: 20101109
  4. LOCOID [Concomitant]
     Dosage: UNK
     Route: 062
  5. PANITUMUMAB [Suspect]
     Dosage: 4 MG/KG, Q2WK
     Route: 041
     Dates: start: 20100824, end: 20110315
  6. OXALIPLATIN [Suspect]
     Indication: COLORECTAL CANCER
     Route: 041
     Dates: start: 20100629, end: 20101109
  7. LEUCOVORIN CALCIUM [Concomitant]
     Indication: COLORECTAL CANCER
     Route: 041
     Dates: start: 20100629, end: 20101109
  8. FLUOROURACIL [Concomitant]
     Indication: COLORECTAL CANCER
     Route: 040
     Dates: start: 20100629, end: 20101109
  9. PANITUMUMAB [Suspect]
     Indication: COLORECTAL CANCER
     Dosage: 6 MG/KG, Q2WK
     Route: 041
     Dates: start: 20100629, end: 20100824
  10. CAMPTOSAR [Suspect]
     Indication: COLORECTAL CANCER
     Route: 041
     Dates: start: 20101208, end: 20110315
  11. ALLEGRA [Concomitant]
     Dosage: UNK
     Route: 048
  12. MYSER OINTMENT [Concomitant]
     Route: 062
  13. ANTIHISTAMINES [Concomitant]
     Indication: PROPHYLAXIS
     Dosage: UNK
     Route: 065
  14. CORTICOSTEROIDS [Concomitant]
     Indication: PROPHYLAXIS
     Dosage: UNK
     Route: 065
  15. LOCOID [Concomitant]
     Route: 062

REACTIONS (5)
  - DERMATITIS ACNEIFORM [None]
  - PARONYCHIA [None]
  - DRY SKIN [None]
  - HYPOAESTHESIA [None]
  - PANCYTOPENIA [None]
